FAERS Safety Report 6478397-0 (Version None)
Quarter: 2009Q4

REPORT INFORMATION
  Report Type: 
  Country: None (occurrence: None)
  Receive Date: 20091207
  Receipt Date: 20091125
  Transmission Date: 20100525
  Serious: Yes (Hospitalization, Other)
  Sender: FDA-Public Use
  Company Number: PHHY2009TR52878

PATIENT
  Age: 21 Year
  Sex: Female

DRUGS (9)
  1. CYCLOSPORINE [Suspect]
     Indication: GLOMERULONEPHRITIS MEMBRANOPROLIFERATIVE
     Dosage: 100 MG, BID
     Route: 048
     Dates: start: 20050101
  2. CYCLOSPORINE [Suspect]
     Dosage: 100 MG/DAY
     Route: 048
  3. CYCLOSPORINE [Suspect]
     Dosage: 100 MG IN THE MORNING AND 50 MG IN THE EVENING
     Route: 048
  4. STEROIDS NOS [Concomitant]
     Dosage: UNK
     Route: 048
     Dates: start: 20050101
  5. ENALAPRIL [Concomitant]
     Dosage: 10 MG, QD
  6. PREDNISOLONE [Concomitant]
     Dosage: 40 MG, QOD
  7. BETAMETHASONE [Concomitant]
     Indication: ABNORMAL LABOUR
     Dosage: 12 MG, Q12H
     Route: 030
  8. CANDESARTAN CILEXETIL [Concomitant]
     Dosage: 4 MG, QD
  9. TINZAPARIN SODIUM [Concomitant]
     Dosage: 3500 IU, QD

REACTIONS (8)
  - CAESAREAN SECTION [None]
  - DRUG EXPOSURE DURING PREGNANCY [None]
  - FACE OEDEMA [None]
  - HYDRONEPHROSIS [None]
  - OEDEMA PERIPHERAL [None]
  - OLIGOHYDRAMNIOS [None]
  - PREMATURE LABOUR [None]
  - PROTEINURIA [None]
